FAERS Safety Report 18518648 (Version 3)
Quarter: 2021Q1

REPORT INFORMATION
  Report Type: Spontaneous
  Country: US (occurrence: US)
  Receive Date: 20201118
  Receipt Date: 20210204
  Transmission Date: 20210419
  Serious: Yes (Other)
  Sender: FDA-Public Use
  Company Number: US-BAYER-2020-246221

PATIENT
  Age: 61 Year
  Sex: Female

DRUGS (3)
  1. KOGENATE FS [Suspect]
     Active Substance: ANTIHEMOPHILIC FACTOR, HUMAN RECOMBINANT
     Dosage: 3000 UN IV (1 DF)? TREATMENT FOR LEFT FOOT BLEED
     Route: 042
     Dates: start: 20201110
  2. KOGENATE FS [Suspect]
     Active Substance: ANTIHEMOPHILIC FACTOR, HUMAN RECOMBINANT
     Dosage: 3000 UNITS, USED 1 DOSE TO CONTROL LEFT ELBOW BLEED
     Route: 042
     Dates: start: 20210102
  3. KOGENATE FS [Suspect]
     Active Substance: ANTIHEMOPHILIC FACTOR, HUMAN RECOMBINANT
     Dosage: 3000 U (2 DOSES TO TREAT THE RIGHT HIP BLEED)
     Route: 042
     Dates: start: 20201110

REACTIONS (4)
  - Haemarthrosis [None]
  - Haemorrhage [Recovered/Resolved]
  - Haemarthrosis [None]
  - Haemarthrosis [Recovered/Resolved]

NARRATIVE: CASE EVENT DATE: 20210101
